FAERS Safety Report 5613083-8 (Version None)
Quarter: 2008Q1

REPORT INFORMATION
  Report Type: 
  Country: None (occurrence: None)
  Receive Date: 20080204
  Receipt Date: 20080124
  Transmission Date: 20080703
  Serious: Yes (Disabling)
  Sender: FDA-Public Use
  Company Number: GB-PFIZER INC-2008008045

PATIENT
  Age: 63 Year
  Sex: Male

DRUGS (4)
  1. XALATAN [Suspect]
     Indication: GLAUCOMA
     Route: 061
     Dates: start: 20071123, end: 20071228
  2. DICLOFENAC [Concomitant]
     Route: 048
  3. PANTOPRAZOLE [Concomitant]
     Route: 048
  4. TIMOLOL MALEATE [Concomitant]
     Route: 061
     Dates: start: 20070123, end: 20080104

REACTIONS (3)
  - EYE ALLERGY [None]
  - LACRIMATION INCREASED [None]
  - PRURITUS [None]
